FAERS Safety Report 9364904 (Version 1)
Quarter: 2013Q2

REPORT INFORMATION
  Report Type: Report from Study
  Country: US (occurrence: US)
  Receive Date: 20130624
  Receipt Date: 20130624
  Transmission Date: 20140414
  Serious: Yes (Death, Hospitalization)
  Sender: FDA-Public Use
  Company Number: US-VIIV HEALTHCARE LIMITED-B0901789A

PATIENT
  Age: 67 Year
  Sex: Male
  Weight: 120 kg

DRUGS (2)
  1. MARAVIROC [Suspect]
     Indication: PROPHYLAXIS AGAINST GRAFT VERSUS HOST DISEASE
     Dosage: 300MG TWICE PER DAY
     Route: 048
     Dates: start: 20130429, end: 20130604
  2. BONE MARROW TRANSPLANT [Concomitant]

REACTIONS (1)
  - Febrile neutropenia [Fatal]
